FAERS Safety Report 10034925 (Version 5)
Quarter: 2014Q4

REPORT INFORMATION
  Report Type: Spontaneous
  Country: CN (occurrence: None)
  Receive Date: 20140321
  Receipt Date: 20141024
  Transmission Date: 20150528
  Serious: Yes (Other)
  Sender: FDA-Public Use
  Company Number: VAL_03039_2014

PATIENT
  Age: 35 Year
  Sex: Male

DRUGS (3)
  1. LOTENSIN [Suspect]
     Active Substance: BENAZEPRIL HYDROCHLORIDE
     Indication: HYPERTENSION
     Dosage: (5 MG QD, IRREGULAR USE ORAL)
     Route: 048
     Dates: start: 2012
  2. AMLODIPINE [Concomitant]
     Active Substance: AMLODIPINE BESYLATE
  3. DIOVAN [Suspect]
     Active Substance: VALSARTAN
     Indication: HYPERTENSION
     Route: 048
     Dates: start: 20120101, end: 20140430

REACTIONS (10)
  - Cough [None]
  - Blood pressure increased [None]
  - Drug dose omission [None]
  - Haemoptysis [None]
  - Blood pressure inadequately controlled [None]
  - Gingival swelling [None]
  - No therapeutic response [None]
  - Product quality issue [None]
  - Inappropriate schedule of drug administration [None]
  - Periodontal disease [None]
